FAERS Safety Report 9708258 (Version 1)
Quarter: 2013Q4

REPORT INFORMATION
  Report Type: Spontaneous
  Country: GB (occurrence: GB)
  Receive Date: 20131125
  Receipt Date: 20131125
  Transmission Date: 20140711
  Serious: Yes (Life-Threatening, Hospitalization)
  Sender: FDA-Public Use
  Company Number: GB-AMGEN-GBRSP2013082525

PATIENT
  Age: 63 Year
  Sex: Female

DRUGS (9)
  1. ENBREL [Suspect]
     Indication: PRODUCT USED FOR UNKNOWN INDICATION
     Dosage: UNK
     Route: 065
  2. ADCAL D3 [Concomitant]
     Dosage: UNK
  3. BISOPROLOL [Concomitant]
     Dosage: 1.25 G, UNK
  4. CLOPIDOGREL [Concomitant]
     Dosage: 75 MG, UNK
  5. LOSARTAN [Concomitant]
     Dosage: 100 MG, UNK
  6. NICORANDIL [Concomitant]
     Dosage: 5 MG, UNK
  7. SALBUTAMOL [Concomitant]
     Dosage: UNK
  8. LANSOPRAZOLE [Concomitant]
     Dosage: UNK
  9. SALMETEROL [Concomitant]
     Dosage: UNK

REACTIONS (2)
  - Diverticular perforation [Recovered/Resolved]
  - Symptom masked [Unknown]
